FAERS Safety Report 25716759 (Version 1)
Quarter: 2025Q3

REPORT INFORMATION
  Report Type: Other
  Country: GB (occurrence: GB)
  Receive Date: 20250822
  Receipt Date: 20250822
  Transmission Date: 20251020
  Serious: Yes (Other)
  Sender: Alora Pharma
  Company Number: GB-VERTICAL PHARMACEUTICALS-2025ALO02442

PATIENT
  Age: 47 Year

DRUGS (9)
  1. ESTRADIOL [Suspect]
     Active Substance: ESTRADIOL
     Indication: Product used for unknown indication
     Route: 062
  2. ESTRADIOL [Suspect]
     Active Substance: ESTRADIOL
     Route: 062
     Dates: start: 20250703
  3. MOUNJARO [Suspect]
     Active Substance: TIRZEPATIDE
     Indication: Product used for unknown indication
     Dosage: 10 MG, 1X/WEEK
     Dates: end: 20250618
  4. OMEPRAZOLE [Concomitant]
     Active Substance: OMEPRAZOLE
     Dosage: 40 MG, 1 D
  5. FLUOXETINE [Concomitant]
     Active Substance: FLUOXETINE HYDROCHLORIDE
     Dosage: TWO TO BE TAKEN EACH DAY
  6. ALVERINE [Concomitant]
     Active Substance: ALVERINE
     Dosage: 60 MG, 3X/DAY (1 IN 8 HR)
  7. MEBEVERINE [Concomitant]
     Active Substance: MEBEVERINE
     Dosage: UNK, 3X/DAY AND NBSP (135 MG, 1 IN 8 HR)
  8. Lexpec folic acid [Concomitant]
     Dosage: 5 MG, 1X/DAY, TWO 5 ML SPOONFULL
  9. FELODIPINE [Concomitant]
     Active Substance: FELODIPINE
     Dosage: 5 MG, 1X/DAY, ONE DAILY-EVERY MORNING ACUTES + NBSP

REACTIONS (1)
  - Pancreatitis acute [Unknown]
